FAERS Safety Report 11405339 (Version 1)
Quarter: 2015Q3

REPORT INFORMATION
  Report Type: Spontaneous
  Country: CR (occurrence: CR)
  Receive Date: 20150821
  Receipt Date: 20150821
  Transmission Date: 20151125
  Serious: Yes (Other)
  Sender: FDA-Public Use
  Company Number: CR-PFIZER INC-2015277458

PATIENT
  Age: 40 Year
  Sex: Female

DRUGS (1)
  1. ALTRULINE [Suspect]
     Active Substance: SERTRALINE HYDROCHLORIDE
     Indication: DEPRESSION
     Dosage: 50 MG, DAILY
     Route: 048
     Dates: start: 20150811, end: 20150813

REACTIONS (5)
  - Tongue disorder [Unknown]
  - Somnolence [Not Recovered/Not Resolved]
  - Yawning [Not Recovered/Not Resolved]
  - Dyspnoea [Unknown]
  - Macroglossia [Unknown]

NARRATIVE: CASE EVENT DATE: 20150811
